FAERS Safety Report 8300261-2 (Version None)
Quarter: 2012Q2

REPORT INFORMATION
  Report Type: 
  Country: None (occurrence: None)
  Receive Date: 20120420
  Receipt Date: 20120411
  Transmission Date: 20120825
  Serious: Yes (Other)
  Sender: FDA-Public Use
  Company Number: CA-JNJFOC-20120406341

PATIENT
  Sex: Female
  Weight: 112 kg

DRUGS (11)
  1. SYNTHROID [Concomitant]
     Route: 065
  2. TYLENOL (CAPLET) [Concomitant]
     Route: 065
  3. PREVACID [Concomitant]
     Route: 065
  4. PREDNISONE TAB [Concomitant]
     Route: 065
  5. CALCIUM CARBONATE [Concomitant]
     Route: 065
  6. ALENDRONATE SODIUM [Concomitant]
     Route: 065
  7. REMICADE [Suspect]
     Indication: CROHN'S DISEASE
     Dosage: LOADING DOSE
     Route: 042
     Dates: start: 20120326
  8. IRON [Concomitant]
     Route: 065
  9. VITAMIN D [Concomitant]
     Route: 065
  10. WARFARIN SODIUM [Concomitant]
     Route: 065
  11. PENTASA [Concomitant]
     Route: 065

REACTIONS (1)
  - ARTHRITIS [None]
